FAERS Safety Report 21365085 (Version 3)
Quarter: 2023Q1

REPORT INFORMATION
  Report Type: Spontaneous
  Country: US (occurrence: US)
  Receive Date: 20220922
  Receipt Date: 20230120
  Transmission Date: 20230417
  Serious: Yes (Life-Threatening, Other)
  Sender: FDA-Public Use
  Company Number: US-PFIZER INC-PV202200068000

PATIENT
  Age: 61 Year
  Sex: Female

DRUGS (1)
  1. XELJANZ [Suspect]
     Active Substance: TOFACITINIB CITRATE
     Indication: Rheumatoid arthritis
     Dosage: 5 MG, 2X/DAY
     Route: 048
     Dates: start: 202208

REACTIONS (16)
  - Rheumatoid arthritis [Not Recovered/Not Resolved]
  - Fall [Recovering/Resolving]
  - Product dose omission issue [Unknown]
  - Urinary tract infection [Unknown]
  - Post procedural infection [Unknown]
  - Joint injury [Recovering/Resolving]
  - Loss of personal independence in daily activities [Unknown]
  - Memory impairment [Unknown]
  - Headache [Recovering/Resolving]
  - Pain [Unknown]
  - Abdominal pain upper [Unknown]
  - Depression [Unknown]
  - Anxiety [Unknown]
  - Dyspnoea [Unknown]
  - Pruritus [Unknown]
  - Nasopharyngitis [Unknown]

NARRATIVE: CASE EVENT DATE: 20230110
